FAERS Safety Report 4808833-4 (Version None)
Quarter: 2005Q4

REPORT INFORMATION
  Report Type: 
  Country: None (occurrence: None)
  Receive Date: 20051021
  Receipt Date: 20021213
  Transmission Date: 20060501
  Serious: No
  Sender: FDA-Public Use
  Company Number: DE_021210384

PATIENT
  Age: 35 Year
  Sex: Male
  Weight: 68 kg

DRUGS (4)
  1. ZYPREXA [Suspect]
     Indication: SCHIZOPHRENIA, PARANOID TYPE
     Dosage: 20 MG/2 DAY
     Dates: start: 20011001, end: 20030127
  2. FLUPHENAZINE [Concomitant]
  3. DIAZEPAM [Concomitant]
  4. AKINETON [Concomitant]

REACTIONS (3)
  - LYMPHOPENIA [None]
  - PRESCRIBED OVERDOSE [None]
  - WHITE BLOOD CELL COUNT INCREASED [None]
